FAERS Safety Report 10595426 (Version 7)
Quarter: 2015Q2

REPORT INFORMATION
  Report Type: Report from Study
  Country: US (occurrence: US)
  Receive Date: 20141120
  Receipt Date: 20150518
  Transmission Date: 20150821
  Serious: Yes (Death, Hospitalization)
  Sender: FDA-Public Use
  Company Number: US-SA-2014SA156007

PATIENT
  Age: 76 Year
  Sex: Male
  Weight: 86.86 kg

DRUGS (23)
  1. BELLADONNA ALKALOIDS [Concomitant]
     Active Substance: BELLADONNA ALKALOIDS
     Dates: start: 20141105
  2. ALBUTEROL W/IPRATROPIUM [Concomitant]
     Active Substance: ALBUTEROL\IPRATROPIUM
     Route: 065
  3. POLYSTYRENE SULFONATE SODIUM [Concomitant]
     Active Substance: SODIUM POLYSTYRENE SULFONATE
     Dates: start: 201402
  4. MAGNESIUM HYDROXIDE. [Concomitant]
     Active Substance: MAGNESIUM HYDROXIDE
     Route: 048
     Dates: start: 20140201
  5. HYDROCODONE W/ACETAMINOPHEN [Concomitant]
     Active Substance: ACETAMINOPHEN\HYDROCODONE BITARTRATE
     Indication: PAIN
     Route: 065
  6. COLACE [Concomitant]
     Active Substance: DOCUSATE SODIUM
     Route: 048
  7. TYLENOL [Concomitant]
     Active Substance: ACETAMINOPHEN
     Route: 048
  8. ZOFRAN [Concomitant]
     Active Substance: ONDANSETRON HYDROCHLORIDE
     Route: 065
  9. XALATAN [Concomitant]
     Active Substance: LATANOPROST
     Route: 065
  10. IRINOTECAN [Suspect]
     Active Substance: IRINOTECAN
     Indication: COLORECTAL CANCER METASTATIC
     Route: 041
     Dates: start: 20141105, end: 20141105
  11. 5-FU [Suspect]
     Active Substance: FLUOROURACIL
     Indication: COLORECTAL CANCER METASTATIC
     Route: 041
     Dates: start: 20141105, end: 20141105
  12. STOOL SOFTENER [Concomitant]
     Active Substance: DOCUSATE CALCIUM
     Dates: start: 201402
  13. SODIUM CHLORIDE. [Concomitant]
     Active Substance: SODIUM CHLORIDE
     Route: 042
     Dates: start: 20141107
  14. ALBUTEROL W/IPRATROPIUM [Concomitant]
     Active Substance: ALBUTEROL\IPRATROPIUM
     Dates: start: 2009
  15. ACETAMINOPHEN. [Concomitant]
     Active Substance: ACETAMINOPHEN
     Route: 048
  16. CHLORPROMAZINE [Concomitant]
     Active Substance: CHLORPROMAZINE
     Indication: HICCUPS
     Route: 048
     Dates: start: 20141107
  17. AFLIBERCEPT [Suspect]
     Active Substance: AFLIBERCEPT
     Indication: COLORECTAL CANCER METASTATIC
     Route: 041
     Dates: start: 20141105, end: 20141105
  18. PROCHLORPERAZINE. [Concomitant]
     Active Substance: PROCHLORPERAZINE
     Dates: start: 20140210
  19. SALBUTAMOL SULFATE/IPRATROPIUM BROMIDE [Concomitant]
     Route: 065
  20. LATANOPROST. [Concomitant]
     Active Substance: LATANOPROST
     Dates: start: 2011
  21. FLUTICASONE [Concomitant]
     Active Substance: FLUTICASONE\FLUTICASONE PROPIONATE
     Route: 065
  22. FLONASE [Concomitant]
     Active Substance: FLUTICASONE PROPIONATE
     Route: 045
  23. ATROVENT [Concomitant]
     Active Substance: IPRATROPIUM BROMIDE
     Route: 048

REACTIONS (54)
  - Neutrophil count decreased [Recovered/Resolved]
  - Lymphopenia [Recovered/Resolved]
  - Contusion [Recovered/Resolved]
  - Cough [Not Recovered/Not Resolved]
  - Oedema peripheral [Not Recovered/Not Resolved]
  - Blood bilirubin increased [Recovered/Resolved]
  - Nausea [Not Recovered/Not Resolved]
  - Chills [Not Recovered/Not Resolved]
  - Dehydration [Recovered/Resolved]
  - Hypoalbuminaemia [Recovered/Resolved]
  - Pruritus generalised [Recovered/Resolved]
  - Dysaesthesia pharynx [Recovered/Resolved]
  - Urinary incontinence [Not Recovered/Not Resolved]
  - Hypoxia [Recovered/Resolved]
  - Hypocalcaemia [Not Recovered/Not Resolved]
  - Hyponatraemia [Recovered/Resolved]
  - Vomiting [Recovered/Resolved]
  - Intestinal obstruction [Not Recovered/Not Resolved]
  - Lethargy [Not Recovered/Not Resolved]
  - Muscular weakness [Recovered/Resolved]
  - Dry skin [Recovered/Resolved]
  - Hiccups [Not Recovered/Not Resolved]
  - Insomnia [Not Recovered/Not Resolved]
  - Lung infection [Not Recovered/Not Resolved]
  - Oropharyngeal pain [Not Recovered/Not Resolved]
  - Arthralgia [Not Recovered/Not Resolved]
  - Malignant neoplasm progression [Fatal]
  - Flatulence [Recovered/Resolved]
  - Vision blurred [Not Recovered/Not Resolved]
  - Dyspnoea [Not Recovered/Not Resolved]
  - Fatigue [Not Recovered/Not Resolved]
  - Diarrhoea [Recovered/Resolved]
  - Dry mouth [Recovered/Resolved]
  - White blood cell count decreased [Recovered/Resolved]
  - Platelet count decreased [Recovered/Resolved]
  - Lymphopenia [Recovered/Resolved]
  - Aspartate aminotransferase increased [Recovered/Resolved]
  - Anaemia [Not Recovered/Not Resolved]
  - Tachycardia [Not Recovered/Not Resolved]
  - Anxiety [Not Recovered/Not Resolved]
  - Confusional state [Not Recovered/Not Resolved]
  - Dysphonia [Not Recovered/Not Resolved]
  - Personality change [Not Recovered/Not Resolved]
  - Abdominal pain [Not Recovered/Not Resolved]
  - Hypotension [Not Recovered/Not Resolved]
  - Decreased appetite [Not Recovered/Not Resolved]
  - Hypocalcaemia [Recovered/Resolved]
  - Hypomagnesaemia [Recovered/Resolved]
  - Neuropathy peripheral [Not Recovered/Not Resolved]
  - Constipation [Recovered/Resolved]
  - Paraesthesia [Recovered/Resolved]
  - Depression [Not Recovered/Not Resolved]
  - Hyperglycaemia [Recovered/Resolved]
  - Dizziness [Recovered/Resolved]

NARRATIVE: CASE EVENT DATE: 20141107
